FAERS Safety Report 24378581 (Version 1)
Quarter: 2024Q3

REPORT INFORMATION
  Report Type: Spontaneous
  Country: US (occurrence: None)
  Receive Date: 20240927
  Receipt Date: 20240927
  Transmission Date: 20241016
  Serious: Yes (Hospitalization)
  Sender: Public
  Company Number: None

PATIENT
  Age: 53 Year
  Sex: Male
  Weight: 179 kg

DRUGS (1)
  1. SEMAGLUTIDE [Suspect]
     Active Substance: SEMAGLUTIDE
     Indication: Diabetes mellitus
     Dosage: 1.00 MG  QWEEK SUBCUTANEOUS?
     Route: 058
     Dates: start: 20230717

REACTIONS (3)
  - Diarrhoea [None]
  - Vomiting [None]
  - Cholecystectomy [None]

NARRATIVE: CASE EVENT DATE: 20231222
